FAERS Safety Report 8590186-X (Version None)
Quarter: 2012Q3

REPORT INFORMATION
  Report Type: 
  Country: None (occurrence: None)
  Receive Date: 20120813
  Receipt Date: 19930413
  Transmission Date: 20120928
  Serious: Yes (Death)
  Sender: FDA-Public Use
  Company Number: US-ROCHE-1100457

PATIENT
  Sex: Female

DRUGS (4)
  1. ALDORIL 15 [Concomitant]
  2. MICRO-K [Concomitant]
  3. INDERAL [Concomitant]
  4. ACTIVASE [Suspect]
     Indication: ACUTE MYOCARDIAL INFARCTION

REACTIONS (1)
  - DEATH [None]
